FAERS Safety Report 10505304 (Version 1)
Quarter: 2014Q3

REPORT INFORMATION
  Report Type: Spontaneous
  Country: US (occurrence: None)
  Receive Date: 20140926
  Receipt Date: 20140926
  Transmission Date: 20150326
  Serious: No
  Sender: FDA-Public Use
  Company Number: 1000069168

PATIENT
  Age: 52 Year
  Sex: Female

DRUGS (7)
  1. OXYCODONE [Concomitant]
     Active Substance: OXYCODONE
  2. TOPAMAX [Concomitant]
     Active Substance: TOPIRAMATE
  3. LYRICA [Concomitant]
     Active Substance: PREGABALIN
  4. AMITRIPTYLINE [Concomitant]
     Active Substance: AMITRIPTYLINE
  5. MEXILETINE [Concomitant]
     Active Substance: MEXILETINE
  6. KLONOPIN [Concomitant]
     Active Substance: CLONAZEPAM
  7. LINZESS [Suspect]
     Active Substance: LINACLOTIDE
     Indication: CONSTIPATION
     Dates: start: 201407

REACTIONS (3)
  - Flatulence [None]
  - Pollakiuria [None]
  - Off label use [None]

NARRATIVE: CASE EVENT DATE: 201407
